FAERS Safety Report 11863366 (Version 1)
Quarter: 2015Q4

REPORT INFORMATION
  Report Type: Spontaneous
  Country: CN (occurrence: CN)
  Receive Date: 20151223
  Receipt Date: 20151223
  Transmission Date: 20160305
  Serious: Yes (Death, Hospitalization, Other)
  Sender: FDA-Public Use
  Company Number: CN-WATSON-2015-12697

PATIENT
  Age: 56 Year
  Sex: Female

DRUGS (1)
  1. TAMOXIFEN (UNKNOWN) [Suspect]
     Active Substance: TAMOXIFEN
     Indication: BREAST CANCER
     Dosage: 20 MG, DAILY
     Route: 065

REACTIONS (2)
  - Uterine cancer [Fatal]
  - Invasive ductal breast carcinoma [Fatal]
